FAERS Safety Report 12678602 (Version 2)
Quarter: 2016Q3

REPORT INFORMATION
  Report Type: Spontaneous
  Country: FR (occurrence: FR)
  Receive Date: 20160823
  Receipt Date: 20160927
  Transmission Date: 20161109
  Serious: Yes (Hospitalization, Other)
  Sender: FDA-Public Use
  Company Number: FR-009507513-1608FRA011009

PATIENT
  Age: 44 Year
  Sex: Female

DRUGS (7)
  1. FUROSEMIDE ACCORD [Suspect]
     Active Substance: FUROSEMIDE
     Indication: BREAST CANCER
     Dosage: 1 G, UNK
     Route: 042
     Dates: start: 20160719
  2. ONDANSETRON [Suspect]
     Active Substance: ONDANSETRON
     Indication: PROPHYLAXIS OF NAUSEA AND VOMITING
     Dosage: 8 MG, UNK
     Route: 048
     Dates: start: 20160719
  3. CORTANCYL [Suspect]
     Active Substance: PREDNISONE
     Indication: PROPHYLAXIS OF NAUSEA AND VOMITING
     Dosage: 60 MG, UNK
     Route: 048
     Dates: start: 20160719
  4. ENDOXAN [Suspect]
     Active Substance: CYCLOPHOSPHAMIDE
     Indication: BREAST CANCER
     Dosage: 1 G, UNK
     Route: 042
     Dates: start: 20160719
  5. FUROSEMIDE ACCORD [Suspect]
     Active Substance: FUROSEMIDE
     Dosage: 1 G, UNK
     Route: 042
     Dates: start: 20160809
  6. EPIRUBICIN [Suspect]
     Active Substance: EPIRUBICIN
     Indication: BREAST CANCER
     Dosage: 200 MG, UNK
     Route: 048
     Dates: start: 20160719
  7. EMEND [Suspect]
     Active Substance: APREPITANT
     Indication: PROPHYLAXIS OF NAUSEA AND VOMITING
     Dosage: 125 MG, UNK
     Route: 048
     Dates: start: 20160719

REACTIONS (6)
  - Nausea [None]
  - Hyperglycaemia [None]
  - Blood lactic acid increased [None]
  - Leukocytosis [None]
  - Vomiting [None]
  - Generalised tonic-clonic seizure [Recovered/Resolved]

NARRATIVE: CASE EVENT DATE: 20160719
